FAERS Safety Report 23845108 (Version 1)
Quarter: 2024Q2

REPORT INFORMATION
  Report Type: Spontaneous
  Country: US (occurrence: US)
  Receive Date: 20240511
  Receipt Date: 20240511
  Transmission Date: 20240716
  Serious: No
  Sender: FDA-Public Use
  Company Number: US-CIPLA LTD.-2023US07128

PATIENT

DRUGS (6)
  1. ALBUTEROL [Suspect]
     Active Substance: ALBUTEROL
     Indication: Asthma
     Dosage: 2 PUFFS, TID (3 TIMES A DAY AS NEEDED)
     Dates: start: 20231106
  2. ALBUTEROL [Suspect]
     Active Substance: ALBUTEROL
     Indication: Dyspnoea
  3. SYMBICORT [Concomitant]
     Active Substance: BUDESONIDE\FORMOTEROL FUMARATE DIHYDRATE
     Indication: Asthma
     Dosage: 1 PUFF, BID (STARTED LONG TIME AGO) (160/4.5 MCG) (RED COLOR INHALER)
     Route: 065
  4. XYZAL [Concomitant]
     Active Substance: LEVOCETIRIZINE DIHYDROCHLORIDE
     Indication: Hypersensitivity
     Dosage: 5 MILLIGRAM, BID (1 TABLET IN MORNING AND 1 AT NIGHT)
     Route: 065
     Dates: start: 2021
  5. FEXOFENADINE HYDROCHLORIDE [Concomitant]
     Active Substance: FEXOFENADINE HYDROCHLORIDE
     Indication: Hypersensitivity
     Dosage: 180 MILLIGRAM, QD (1 TABLET A DAY)
     Route: 065
     Dates: start: 2020
  6. FLUTICASONE PROPIONATE [Concomitant]
     Active Substance: FLUTICASONE PROPIONATE
     Indication: Asthma
     Dosage: 50 MCG, QD (1 SPRAY IN EACH NOSTRIL ONCE A DAY)
     Route: 065

REACTIONS (7)
  - Dyspnoea [Recovered/Resolved]
  - Rash pruritic [Unknown]
  - Device delivery system issue [Unknown]
  - Intentional product use issue [Unknown]
  - Device mechanical issue [Unknown]
  - Drug ineffective [Unknown]
  - Wheezing [Recovered/Resolved]

NARRATIVE: CASE EVENT DATE: 20231106
